FAERS Safety Report 17544762 (Version 5)
Quarter: 2022Q2

REPORT INFORMATION
  Report Type: Spontaneous
  Country: US (occurrence: US)
  Receive Date: 20200316
  Receipt Date: 20220413
  Transmission Date: 20220721
  Serious: No
  Sender: FDA-Public Use
  Company Number: US-PFIZER INC-2020112730

PATIENT
  Age: 76 Year
  Sex: Female

DRUGS (6)
  1. IBRANCE [Suspect]
     Active Substance: PALBOCICLIB
     Indication: Breast cancer female
     Dosage: 125 MG, CYCLIC (DAILY 21/28 DAY CYCLE)
     Route: 048
     Dates: end: 20200311
  2. IBRANCE [Suspect]
     Active Substance: PALBOCICLIB
     Dosage: 100 MG, CYCLIC (DAILY 21/28 DAY CYCLE)
     Route: 048
     Dates: start: 202003, end: 2020
  3. IBRANCE [Suspect]
     Active Substance: PALBOCICLIB
     Dosage: 75 MG
     Dates: start: 2020
  4. IBRANCE [Suspect]
     Active Substance: PALBOCICLIB
     Dosage: 75 MG, 14 DAYS ON AND 14 DAYS OFF
  5. ELIQUIS [Concomitant]
     Active Substance: APIXABAN
     Dosage: 1 DF, 2X/DAY
     Route: 048
     Dates: start: 20200131
  6. OXYCODONE [Concomitant]
     Active Substance: OXYCODONE
     Indication: Pain
     Dosage: UNK UNK, AS NEEDED
     Dates: start: 20200210

REACTIONS (5)
  - Off label use [Unknown]
  - Product dispensing error [Unknown]
  - Product dose omission issue [Unknown]
  - Diarrhoea [Unknown]
  - Decreased appetite [Not Recovered/Not Resolved]
